FAERS Safety Report 19761585 (Version 1)
Quarter: 2021Q3

REPORT INFORMATION
  Report Type: Spontaneous
  Country: CN (occurrence: CN)
  Receive Date: 20210827
  Receipt Date: 20210827
  Transmission Date: 20211014
  Serious: Yes (Hospitalization, Other)
  Sender: FDA-Public Use
  Company Number: CN-ASTRAZENECA-2021A694648

PATIENT
  Age: 10592 Day
  Sex: Female
  Weight: 48 kg

DRUGS (4)
  1. AMOXICILLIN. [Suspect]
     Active Substance: AMOXICILLIN
     Indication: HELICOBACTER INFECTION
     Route: 048
     Dates: start: 20210614, end: 20210625
  2. FURAZOLIDONE [Suspect]
     Active Substance: FURAZOLIDONE
     Indication: HELICOBACTER INFECTION
     Route: 048
     Dates: start: 20210614, end: 20210625
  3. ESOMEPRAZOLE MAGNESIUM. [Suspect]
     Active Substance: ESOMEPRAZOLE MAGNESIUM
     Indication: HELICOBACTER INFECTION
     Route: 048
     Dates: start: 20210614, end: 20210625
  4. COLLOIDAL BISMUTH PECTIN [Suspect]
     Active Substance: BISMUTH
     Indication: HELICOBACTER INFECTION
     Route: 048
     Dates: start: 20210614, end: 20210625

REACTIONS (4)
  - Chest discomfort [Unknown]
  - Respiratory disorder [Unknown]
  - Cough [Unknown]
  - Urticaria [Recovering/Resolving]

NARRATIVE: CASE EVENT DATE: 20210624
